FAERS Safety Report 7903471-9 (Version None)
Quarter: 2011Q4

REPORT INFORMATION
  Report Type: 
  Country: None (occurrence: None)
  Receive Date: 20111109
  Receipt Date: 20111102
  Transmission Date: 20120403
  Serious: Yes (Other)
  Sender: FDA-Public Use
  Company Number: US-UCBSA-044760

PATIENT
  Sex: Female

DRUGS (4)
  1. VERAPAMIL [Suspect]
  2. ACETAMINOPHEN [Suspect]
  3. NITROGLYCERIN [Suspect]
  4. CARVEDILOL [Suspect]

REACTIONS (1)
  - CEREBROVASCULAR ACCIDENT [None]
